FAERS Safety Report 9442857 (Version 1)
Quarter: 2013Q3

REPORT INFORMATION
  Report Type: Spontaneous
  Country: US (occurrence: None)
  Receive Date: 20130805
  Receipt Date: 20130805
  Transmission Date: 20140515
  Serious: No
  Sender: FDA-Public Use
  Company Number: None

PATIENT
  Sex: Male

DRUGS (1)
  1. ENBREL 50MG AMGEN [Suspect]
     Dosage: 50MG 1SYRINGE ONCE PER WEEK SUB Q
     Dates: start: 20130702

REACTIONS (1)
  - Tinnitus [None]
